FAERS Safety Report 6393541-1 (Version None)
Quarter: 2009Q4

REPORT INFORMATION
  Report Type: 
  Country: None (occurrence: None)
  Receive Date: 20091008
  Receipt Date: 20091002
  Transmission Date: 20100525
  Serious: Yes (Hospitalization)
  Sender: FDA-Public Use
  Company Number: B0595426A

PATIENT
  Sex: Female

DRUGS (1)
  1. AUGMENTIN [Suspect]
     Indication: PHARYNGITIS
     Route: 065
     Dates: start: 20090924, end: 20090925

REACTIONS (4)
  - AGITATION [None]
  - DIZZINESS [None]
  - TACHYCARDIA [None]
  - VOMITING [None]
